FAERS Safety Report 24547108 (Version 1)
Quarter: 2024Q4

REPORT INFORMATION
  Report Type: Spontaneous
  Country: FR (occurrence: FR)
  Receive Date: 20241025
  Receipt Date: 20241025
  Transmission Date: 20250115
  Serious: Yes (Hospitalization)
  Sender: JOHNSON AND JOHNSON
  Company Number: None

PATIENT
  Age: 9 Year
  Sex: Female
  Weight: 23.5 kg

DRUGS (4)
  1. XARELTO [Suspect]
     Active Substance: RIVAROXABAN
     Indication: Heart disease congenital
     Dosage: 10 MG, QD
     Route: 048
     Dates: start: 20240430, end: 20240701
  2. ALDACTONE [Concomitant]
     Active Substance: SPIRONOLACTONE
  3. LISDEXAMFETAMINE DIMESYLATE [Concomitant]
     Active Substance: LISDEXAMFETAMINE DIMESYLATE
  4. MELATONIN [Concomitant]
     Active Substance: MELATONIN

REACTIONS (1)
  - Focal myositis [Recovered/Resolved]

NARRATIVE: CASE EVENT DATE: 20240617
